FAERS Safety Report 24311606 (Version 1)
Quarter: 2024Q3

REPORT INFORMATION
  Report Type: Spontaneous
  Country: JP (occurrence: JP)
  Receive Date: 20240912
  Receipt Date: 20240912
  Transmission Date: 20241017
  Serious: Yes (Death, Hospitalization, Other)
  Sender: AZURITY PHARMACEUTICALS
  Company Number: JP-AZURITY PHARMACEUTICALS, INC.-AZR202408-000544

PATIENT
  Sex: Female

DRUGS (9)
  1. METHOTREXATE [Suspect]
     Active Substance: METHOTREXATE
     Indication: Prophylaxis against graft versus host disease
     Dosage: UNK
     Route: 065
  2. FLUDARABINE [Suspect]
     Active Substance: FLUDARABINE PHOSPHATE
     Indication: Angioimmunoblastic T-cell lymphoma
     Dosage: 150 MILLIGRAM/SQ. METER, UNKNOWN
     Route: 065
  3. MELPHALAN [Suspect]
     Active Substance: MELPHALAN
     Indication: Angioimmunoblastic T-cell lymphoma
     Dosage: 140 MILLIGRAM/SQ. METER, UNKNOWN
     Route: 065
  4. PREDNISOLONE [Suspect]
     Active Substance: PREDNISOLONE
     Indication: Acute graft versus host disease
     Dosage: 2 MILLIGRAM/KILOGRAM, UNKNOWN
     Route: 065
  5. PREDNISOLONE [Suspect]
     Active Substance: PREDNISOLONE
     Dosage: 1 MILLIGRAM/KILOGRAM, UNKNOWN
     Route: 065
  6. PREDNISOLONE [Suspect]
     Active Substance: PREDNISOLONE
     Dosage: 0.5 MILLIGRAM/KILOGRAM, UNKNOWN
     Route: 065
  7. PREDNISOLONE [Suspect]
     Active Substance: PREDNISOLONE
     Dosage: 1 MILLIGRAM/KILOGRAM, UNKNOWN
     Route: 065
  8. TACROLIMUS [Suspect]
     Active Substance: TACROLIMUS
     Indication: Prophylaxis against graft versus host disease
     Dosage: UNK
     Route: 065
  9. THYMOCYTE IMMUNE GLOBULIN NOS [Concomitant]
     Active Substance: THYMOCYTE IMMUNE GLOBULIN NOS
     Indication: Acute graft versus host disease
     Dosage: 1 MILLIGRAM/KILOGRAM, UNKNOWN
     Route: 065

REACTIONS (8)
  - Progressive multifocal leukoencephalopathy [Fatal]
  - Hypokalaemia [Unknown]
  - Febrile neutropenia [Unknown]
  - Clostridium difficile infection [Unknown]
  - Pancytopenia [Unknown]
  - Alanine aminotransferase increased [Unknown]
  - Blood bilirubin increased [Unknown]
  - Aspartate aminotransferase increased [Unknown]
